FAERS Safety Report 7584776-0 (Version None)
Quarter: 2011Q2

REPORT INFORMATION
  Report Type: 
  Country: None (occurrence: None)
  Receive Date: 20110630
  Receipt Date: 20110621
  Transmission Date: 20111010
  Serious: Yes (Other)
  Sender: FDA-Public Use
  Company Number: PHHY2011US56286

PATIENT
  Sex: Male
  Weight: 185 kg

DRUGS (1)
  1. GILENYA [Suspect]
     Indication: MULTIPLE SCLEROSIS
     Dosage: 0.5 MG, QD
     Route: 048
     Dates: start: 20110128, end: 20110603

REACTIONS (3)
  - RESPIRATORY TRACT INFECTION [None]
  - CD4 LYMPHOCYTES DECREASED [None]
  - FATIGUE [None]
